FAERS Safety Report 17084778 (Version 2)
Quarter: 2025Q4

REPORT INFORMATION
  Report Type: Spontaneous
  Country: GB (occurrence: GB)
  Receive Date: 20191127
  Receipt Date: 20251202
  Transmission Date: 20260118
  Serious: Yes (Other)
  Sender: NOVARTIS
  Company Number: GB-NOVARTISPH-NVSC2019GB045211

PATIENT
  Age: 10 Year
  Sex: Female

DRUGS (1)
  1. ELTROMBOPAG [Suspect]
     Active Substance: ELTROMBOPAG
     Indication: Thrombocytopenia
     Route: 065

REACTIONS (5)
  - Graft versus host disease [Unknown]
  - Cytomegalovirus infection [Unknown]
  - Gastroenteritis adenovirus [Unknown]
  - Thrombosis [Unknown]
  - Bone marrow failure [Unknown]
